FAERS Safety Report 8839223 (Version 2)
Quarter: 2012Q4

REPORT INFORMATION
  Report Type: 
  Country: US (occurrence: US)
  Receive Date: 20121015
  Receipt Date: 20121210
  Transmission Date: 20130627
  Serious: Yes (Death, Other)
  Sender: FDA-Public Use
  Company Number: US-SHIRE-ALL1-2012-04908

PATIENT
  Sex: Male

DRUGS (1)
  1. FOSRENOL [Suspect]
     Indication: HYPERPHOSPHATAEMIA
     Dosage: 1000 mg, 3x/day:tid
     Route: 048
     Dates: start: 201108

REACTIONS (3)
  - Death [Fatal]
  - Neoplasm malignant [Unknown]
  - Therapy cessation [Unknown]
